FAERS Safety Report 8163772-9 (Version None)
Quarter: 2012Q1

REPORT INFORMATION
  Report Type: 
  Country: None (occurrence: None)
  Receive Date: 20120224
  Receipt Date: 20120217
  Transmission Date: 20120608
  Serious: Yes (Hospitalization, Other)
  Sender: FDA-Public Use
  Company Number: PHHY2012AR013984

PATIENT
  Sex: Female

DRUGS (1)
  1. ONBREZ [Suspect]
     Indication: ASTHMA
     Dosage: 150 MG, QD
     Dates: start: 20111201

REACTIONS (3)
  - BRONCHOSPASM [None]
  - BLOOD PRESSURE INCREASED [None]
  - COUGH [None]
